FAERS Safety Report 9385731 (Version 1)
Quarter: 2013Q3

REPORT INFORMATION
  Report Type: Spontaneous
  Country: US (occurrence: US)
  Receive Date: 20130705
  Receipt Date: 20130705
  Transmission Date: 20140515
  Serious: No
  Sender: FDA-Public Use
  Company Number: US-US-EMD SERONO, INC.-7020253

PATIENT
  Age: 39 Year
  Sex: Male

DRUGS (3)
  1. REBIF [Suspect]
     Indication: PRODUCT USED FOR UNKNOWN INDICATION
     Route: 058
     Dates: start: 20100827
  2. REBIF [Suspect]
     Dates: start: 2010
  3. REBIF [Suspect]
     Dates: start: 2010

REACTIONS (3)
  - Feeling abnormal [Unknown]
  - Influenza like illness [Unknown]
  - Injection site pain [Unknown]
